FAERS Safety Report 12114936 (Version 2)
Quarter: 2016Q1

REPORT INFORMATION
  Report Type: Spontaneous
  Country: US (occurrence: US)
  Receive Date: 20160225
  Receipt Date: 20160317
  Transmission Date: 20160526
  Serious: Yes (Hospitalization)
  Sender: FDA-Public Use
  Company Number: US-BEH-2016059039

PATIENT
  Age: 66 Year
  Sex: Female
  Weight: 90 kg

DRUGS (25)
  1. TORSEMIDE. [Concomitant]
     Active Substance: TORSEMIDE
  2. ATROVENT [Concomitant]
     Active Substance: IPRATROPIUM BROMIDE
  3. DIPHENHYDRAMINE. [Concomitant]
     Active Substance: DIPHENHYDRAMINE
  4. EPIPEN [Concomitant]
     Active Substance: EPINEPHRINE
  5. LMX [Concomitant]
     Active Substance: LIDOCAINE
  6. LEVAQUIN [Concomitant]
     Active Substance: LEVOFLOXACIN
  7. TOBRAMYCIN. [Concomitant]
     Active Substance: TOBRAMYCIN
  8. CIPRO [Concomitant]
     Active Substance: CIPROFLOXACIN HYDROCHLORIDE
  9. DILTIAZEM [Concomitant]
     Active Substance: DILTIAZEM
  10. PEPCID [Concomitant]
     Active Substance: FAMOTIDINE
  11. NITROGLYCERIN. [Concomitant]
     Active Substance: NITROGLYCERIN
  12. NOVOLOG [Concomitant]
     Active Substance: INSULIN ASPART
  13. MUCO-FEN [Concomitant]
     Active Substance: DEXTROMETHORPHAN HYDROBROMIDE\GUAIFENESIN
  14. HIZENTRA [Suspect]
     Active Substance: HUMAN IMMUNOGLOBULIN G
     Indication: IMMUNODEFICIENCY COMMON VARIABLE
     Dosage: 1 GM VIALS
     Route: 058
     Dates: start: 20110420
  15. RESTORIL [Concomitant]
     Active Substance: TEMAZEPAM
  16. SALINE SOLUTION [Concomitant]
     Active Substance: SODIUM CHLORIDE
  17. DUONEB [Concomitant]
     Active Substance: ALBUTEROL SULFATE\IPRATROPIUM BROMIDE
  18. HIZENTRA [Suspect]
     Active Substance: HUMAN IMMUNOGLOBULIN G
     Dosage: 2 GM VIALS
     Route: 058
     Dates: start: 20110420
  19. CEFTRIAXONE. [Concomitant]
     Active Substance: CEFTRIAXONE
  20. POTASSIUM CHLORIDE. [Concomitant]
     Active Substance: POTASSIUM CHLORIDE
  21. FLONASE [Concomitant]
     Active Substance: FLUTICASONE PROPIONATE
  22. IMDUR [Concomitant]
     Active Substance: ISOSORBIDE MONONITRATE
  23. ASTELIN [Concomitant]
     Active Substance: AZELASTINE HYDROCHLORIDE
  24. LOVASTATIN. [Concomitant]
     Active Substance: LOVASTATIN
  25. ASPIRIN. [Concomitant]
     Active Substance: ASPIRIN

REACTIONS (1)
  - Myocardial infarction [Recovered/Resolved]

NARRATIVE: CASE EVENT DATE: 20160206
